FAERS Safety Report 25240387 (Version 1)
Quarter: 2025Q2

REPORT INFORMATION
  Report Type: Spontaneous
  Country: US (occurrence: None)
  Receive Date: 20250425
  Receipt Date: 20250425
  Transmission Date: 20250717
  Serious: Yes (unspecified)
  Sender: FDA-CTU
  Company Number: None

PATIENT
  Age: 80 Year
  Sex: Male
  Weight: 74.25 kg

DRUGS (9)
  1. REPATHA [Suspect]
     Active Substance: EVOLOCUMAB
     Indication: Blood cholesterol increased
     Dates: start: 20250322, end: 20250419
  2. REPATHA [Suspect]
     Active Substance: EVOLOCUMAB
     Indication: Dyslipidaemia
  3. ROSUVASTATIN [Concomitant]
     Active Substance: ROSUVASTATIN
  4. 83 Aspirin [Concomitant]
  5. COENZYME Q10 [Concomitant]
     Active Substance: DIETARY SUPPLEMENT\UBIDECARENONE
  6. FOLATE SODIUM [Concomitant]
     Active Substance: FOLATE SODIUM
  7. VITAMIN D3 [Concomitant]
     Active Substance: CHOLECALCIFEROL
  8. FISH OIL [Concomitant]
     Active Substance: FISH OIL
  9. MAGNESIUM [Concomitant]
     Active Substance: MAGNESIUM

REACTIONS (6)
  - Arthralgia [None]
  - Myalgia [None]
  - Pain [None]
  - Pain in extremity [None]
  - Pain in extremity [None]
  - Musculoskeletal pain [None]

NARRATIVE: CASE EVENT DATE: 20250322
